FAERS Safety Report 24849355 (Version 1)
Quarter: 2025Q1

REPORT INFORMATION
  Report Type: Spontaneous
  Country: CN (occurrence: CN)
  Receive Date: 20250116
  Receipt Date: 20250116
  Transmission Date: 20250409
  Serious: Yes (Other)
  Sender: PFIZER
  Company Number: CN-PFIZER INC-202500007660

PATIENT
  Age: 59 Year
  Sex: Female

DRUGS (12)
  1. IRINOTECAN HYDROCHLORIDE [Suspect]
     Active Substance: IRINOTECAN HYDROCHLORIDE
     Indication: Colon cancer metastatic
     Dates: start: 20201130, end: 20210715
  2. IRINOTECAN HYDROCHLORIDE [Suspect]
     Active Substance: IRINOTECAN HYDROCHLORIDE
     Indication: Colon cancer stage IV
  3. BEVACIZUMAB [Suspect]
     Active Substance: BEVACIZUMAB
     Indication: Colon cancer metastatic
     Dates: start: 20201130, end: 20210715
  4. BEVACIZUMAB [Suspect]
     Active Substance: BEVACIZUMAB
     Indication: Colon cancer stage IV
     Dates: start: 202108, end: 202206
  5. BEVACIZUMAB [Suspect]
     Active Substance: BEVACIZUMAB
     Dates: start: 202207, end: 202212
  6. OXALIPLATIN [Suspect]
     Active Substance: OXALIPLATIN
     Indication: Colon cancer metastatic
     Dates: start: 20201130, end: 20210715
  7. OXALIPLATIN [Suspect]
     Active Substance: OXALIPLATIN
     Indication: Colon cancer stage IV
  8. CAPECITABINE [Suspect]
     Active Substance: CAPECITABINE
     Indication: Colon cancer metastatic
     Dosage: 1.5 G, 2X/DAY, ON D1-7, D15-21 FOR SIX CYCLES
     Dates: start: 20201130, end: 20210715
  9. CAPECITABINE [Suspect]
     Active Substance: CAPECITABINE
     Indication: Colon cancer stage IV
     Dates: start: 202108, end: 202206
  10. CAPECITABINE [Suspect]
     Active Substance: CAPECITABINE
     Dates: start: 202207, end: 202212
  11. MANNITOL [Concomitant]
     Active Substance: MANNITOL
     Indication: Colon cancer metastatic
     Dates: start: 20201130, end: 20210715
  12. MANNITOL [Concomitant]
     Active Substance: MANNITOL
     Indication: Colon cancer stage IV

REACTIONS (2)
  - Agranulocytosis [Recovering/Resolving]
  - Pyrexia [Recovering/Resolving]

NARRATIVE: CASE EVENT DATE: 20210101
